FAERS Safety Report 22616769 (Version 1)
Quarter: 2023Q2

REPORT INFORMATION
  Report Type: Spontaneous
  Country: US (occurrence: US)
  Receive Date: 20230619
  Receipt Date: 20230619
  Transmission Date: 20230721
  Serious: Yes (Hospitalization)
  Sender: FDA-Public Use
  Company Number: US-GILEAD-2023-0631757

PATIENT
  Age: 83 Year
  Sex: Male

DRUGS (3)
  1. VEKLURY [Suspect]
     Active Substance: REMDESIVIR
     Indication: COVID-19
     Dosage: SEE NARRATIVE
     Route: 042
     Dates: start: 202203, end: 202301
  2. OXYGEN [Concomitant]
     Active Substance: OXYGEN
     Dosage: NIGHTTIME
     Dates: start: 202206
  3. OXYGEN [Concomitant]
     Active Substance: OXYGEN
     Dosage: FULL-TIME SUPPORT (2L/MIN)
     Dates: start: 202211

REACTIONS (1)
  - Drug ineffective [Unknown]
